FAERS Safety Report 6675576-4 (Version None)
Quarter: 2010Q2

REPORT INFORMATION
  Report Type: 
  Country: None (occurrence: None)
  Receive Date: 20100409
  Receipt Date: 20100329
  Transmission Date: 20101027
  Serious: Yes (Hospitalization, Other)
  Sender: FDA-Public Use
  Company Number: PHEH2007US07590

PATIENT
  Sex: Female

DRUGS (42)
  1. AREDIA [Suspect]
     Indication: OSTEOPOROSIS
     Dosage: 30 MG, QW3
     Route: 042
     Dates: start: 20000101, end: 20051013
  2. REMICADE [Concomitant]
     Dosage: 350 MG / EVERY 6 WEEKS
  3. CHEMOTHERAPEUTICS NOS [Concomitant]
  4. METHOTREXATE [Concomitant]
  5. IMURAN [Concomitant]
     Dosage: 100 MG, DAILY
  6. QUESTRAN [Concomitant]
  7. PREDNISONE [Concomitant]
  8. DOXYCYCLINE [Concomitant]
  9. THALIDOMIDE [Concomitant]
     Indication: BEHCET'S SYNDROME
     Dosage: 100 MG, UNK
  10. RELAFEN [Concomitant]
     Dosage: 750 MG, BID
  11. VICODIN [Concomitant]
  12. CHEMOTHERAPEUTICS NOS [Concomitant]
  13. GABAPENTIN [Concomitant]
  14. TRAZODONE [Concomitant]
  15. ZOLOFT [Concomitant]
     Dosage: 200 MG / DAILY
  16. ECOTRIN [Concomitant]
     Dosage: 325 MG / DAILY
  17. NEURONTIN [Concomitant]
     Dosage: 400 MG / 3 X DAILY
  18. ERGOCALCIFEROL [Concomitant]
     Dosage: 400 UNITS / DAILY
  19. PROCRIT                            /00909301/ [Concomitant]
     Dosage: UNK
     Dates: end: 20030801
  20. FENTANYL-100 [Concomitant]
     Dosage: UNK
  21. VITAMIN B-12 [Concomitant]
  22. COMBIVENT                               /GFR/ [Concomitant]
  23. NYSTATIN [Concomitant]
  24. NEUTRA-PHOS [Concomitant]
  25. ENTERIC ASPIRIN [Concomitant]
  26. DARVOCET-N 100 [Concomitant]
  27. LIDOCAINE [Concomitant]
  28. DURAGESIC-100 [Concomitant]
  29. INFLUENZA VACCINE [Concomitant]
  30. TYLENOL-500 [Concomitant]
  31. BENADRYL ^ACHE^ [Concomitant]
  32. EVOXAC [Concomitant]
  33. MAGIC MOUTHWASH [Concomitant]
  34. AMBIEN [Concomitant]
  35. K-DUR [Concomitant]
  36. KEFLEX [Concomitant]
  37. PROTONIX [Concomitant]
  38. ROCEPHIN [Concomitant]
  39. CEFTRIAXONE [Concomitant]
  40. VANCOMYCIN [Concomitant]
  41. CLEOCIN [Concomitant]
  42. FLUCONAZOLE [Concomitant]

REACTIONS (98)
  - ABDOMINAL MASS [None]
  - ACTIVITIES OF DAILY LIVING IMPAIRED [None]
  - ANAEMIA [None]
  - ANHEDONIA [None]
  - ANOXIC ENCEPHALOPATHY [None]
  - ANXIETY [None]
  - APHASIA [None]
  - ARTHRALGIA [None]
  - BACK PAIN [None]
  - BALANCE DISORDER [None]
  - BLOOD ANTIDIURETIC HORMONE DECREASED [None]
  - BRAIN NEOPLASM [None]
  - CENTRAL VENOUS CATHETERISATION [None]
  - CONVULSION [None]
  - CUSHINGOID [None]
  - DEFORMITY [None]
  - DENTAL CARIES [None]
  - DIARRHOEA [None]
  - DYSARTHRIA [None]
  - EMOTIONAL DISTRESS [None]
  - ENDODONTIC PROCEDURE [None]
  - ENDOTRACHEAL INTUBATION [None]
  - EPILEPSY [None]
  - FACIAL PALSY [None]
  - FALL [None]
  - FATIGUE [None]
  - FOOT FRACTURE [None]
  - GAIT DISTURBANCE [None]
  - GINGIVAL DISORDER [None]
  - GINGIVITIS [None]
  - GRAND MAL CONVULSION [None]
  - HAEMORRHAGE [None]
  - HEADACHE [None]
  - HEPATIC ENZYME INCREASED [None]
  - HYPOAESTHESIA [None]
  - HYPOAESTHESIA FACIAL [None]
  - HYPOKALAEMIA [None]
  - HYPOKINESIA [None]
  - HYPOPHAGIA [None]
  - HYPOTENSION [None]
  - HYPOXIA [None]
  - IMPAIRED HEALING [None]
  - INFARCTION [None]
  - INFECTION [None]
  - INFLUENZA [None]
  - INJURY [None]
  - INSOMNIA [None]
  - JAW DISORDER [None]
  - JOINT SPRAIN [None]
  - JOINT SWELLING [None]
  - JUDGEMENT IMPAIRED [None]
  - LACUNAR INFARCTION [None]
  - LARGE INTESTINAL ULCER [None]
  - LIFE EXPECTANCY SHORTENED [None]
  - LIVER INJURY [None]
  - LOSS OF CONSCIOUSNESS [None]
  - LOWER LIMB FRACTURE [None]
  - MECHANICAL VENTILATION [None]
  - MEMORY IMPAIRMENT [None]
  - MIDDLE INSOMNIA [None]
  - MIXED CONNECTIVE TISSUE DISEASE [None]
  - MOUTH ULCERATION [None]
  - MUCOSAL ULCERATION [None]
  - MUSCLE ATROPHY [None]
  - MUSCULOSKELETAL CHEST PAIN [None]
  - MYALGIA [None]
  - NERVOUS SYSTEM DISORDER [None]
  - NEUROPATHY PERIPHERAL [None]
  - OEDEMA PERIPHERAL [None]
  - OSTEOARTHRITIS [None]
  - OSTEONECROSIS [None]
  - OSTEOPENIA [None]
  - OVARIAN DISORDER [None]
  - OVERDOSE [None]
  - PAIN [None]
  - PAIN IN JAW [None]
  - PERIODONTITIS [None]
  - PHYSICAL DISABILITY [None]
  - PITUITARY TUMOUR BENIGN [None]
  - PNEUMONIA ASPIRATION [None]
  - PYREXIA [None]
  - RENAL FAILURE [None]
  - SALIVA ALTERED [None]
  - SJOGREN'S SYNDROME [None]
  - SKIN HYPERPIGMENTATION [None]
  - SKIN ULCER [None]
  - SPINAL OSTEOARTHRITIS [None]
  - TOOTH DISORDER [None]
  - TOOTH EXTRACTION [None]
  - TOOTH FRACTURE [None]
  - TOOTH LOSS [None]
  - TRANSFUSION [None]
  - UNRESPONSIVE TO STIMULI [None]
  - URINARY TRACT INFECTION [None]
  - VAGINAL ULCERATION [None]
  - VASCULITIS [None]
  - VISUAL IMPAIRMENT [None]
  - WRIST FRACTURE [None]
